FAERS Safety Report 15505766 (Version 1)
Quarter: 2018Q4

REPORT INFORMATION
  Report Type: Spontaneous
  Country: US (occurrence: US)
  Receive Date: 20181016
  Receipt Date: 20181016
  Transmission Date: 20190205
  Serious: No
  Sender: FDA-Public Use
  Company Number: US-ROCHE-2196133

PATIENT
  Sex: Female
  Weight: 91.71 kg

DRUGS (1)
  1. OCREVUS [Suspect]
     Active Substance: OCRELIZUMAB
     Indication: RELAPSING-REMITTING MULTIPLE SCLEROSIS
     Dosage: UNKNOWN
     Route: 042
     Dates: start: 201711

REACTIONS (8)
  - Asthenia [Unknown]
  - Cognitive disorder [Unknown]
  - Back pain [Unknown]
  - Musculoskeletal pain [Unknown]
  - Fall [Unknown]
  - Relapsing-remitting multiple sclerosis [Unknown]
  - Infection [Unknown]
  - Malaise [Unknown]
